FAERS Safety Report 7536964-7 (Version None)
Quarter: 2011Q2

REPORT INFORMATION
  Report Type: 
  Country: None (occurrence: None)
  Receive Date: 20110609
  Receipt Date: 20110531
  Transmission Date: 20111010
  Serious: Yes (Death)
  Sender: FDA-Public Use
  Company Number: US-GENZYME-POMP-1001585

PATIENT
  Sex: Female
  Weight: 122 kg

DRUGS (1)
  1. LUMIZYME [Suspect]
     Indication: GLYCOGEN STORAGE DISEASE TYPE II
     Dosage: 1250 MG, QW
     Route: 042
     Dates: start: 20101111

REACTIONS (1)
  - COMPLETED SUICIDE [None]
